FAERS Safety Report 11848181 (Version 1)
Quarter: 2015Q4

REPORT INFORMATION
  Report Type: Report from Study
  Country: US (occurrence: US)
  Receive Date: 20151217
  Receipt Date: 20151217
  Transmission Date: 20160305
  Serious: No
  Sender: FDA-Public Use
  Company Number: US-CELGENEUS-USA-2015114308

PATIENT

DRUGS (3)
  1. TEMADOR [Concomitant]
     Active Substance: TEMAZEPAM
     Indication: MALIGNANT MELANOMA
     Route: 065
  2. THALOMID [Suspect]
     Active Substance: THALIDOMIDE
     Indication: OFF LABEL USE
  3. THALOMID [Suspect]
     Active Substance: THALIDOMIDE
     Indication: MALIGNANT MELANOMA
     Route: 048

REACTIONS (3)
  - Nausea [Unknown]
  - Somnolence [Unknown]
  - Adverse event [Unknown]
